FAERS Safety Report 24648091 (Version 1)
Quarter: 2024Q4

REPORT INFORMATION
  Report Type: Report from Study
  Country: GB (occurrence: GB)
  Receive Date: 20241121
  Receipt Date: 20241121
  Transmission Date: 20250115
  Serious: Yes (Other)
  Sender: TEVA
  Company Number: GB-TEVA-VS-3265054

PATIENT
  Age: 20 Year
  Sex: Female

DRUGS (1)
  1. AJOVY [Suspect]
     Active Substance: FREMANEZUMAB-VFRM
     Indication: Product used for unknown indication
     Route: 065

REACTIONS (7)
  - Dizziness [Unknown]
  - Vision blurred [Unknown]
  - Fatigue [Unknown]
  - Abdominal pain [Recovered/Resolved]
  - Injection site irritation [Unknown]
  - Injection site erythema [Unknown]
  - Injection site rash [Unknown]
